FAERS Safety Report 6379520-9 (Version None)
Quarter: 2009Q3

REPORT INFORMATION
  Report Type: 
  Country: None (occurrence: None)
  Receive Date: 20090928
  Receipt Date: 20090917
  Transmission Date: 20100115
  Serious: Yes (Other)
  Sender: FDA-Public Use
  Company Number: IT-JNJFOC-20090905803

PATIENT
  Age: 37 Year
  Sex: Male

DRUGS (2)
  1. REMICADE [Suspect]
     Indication: PSORIASIS
     Route: 042
     Dates: start: 20090610
  2. RAPTIVA [Suspect]
     Indication: PSORIASIS
     Dates: start: 20070201, end: 20090305

REACTIONS (1)
  - BASAL CELL CARCINOMA [None]
